FAERS Safety Report 9262607 (Version 1)
Quarter: 2013Q2

REPORT INFORMATION
  Report Type: Spontaneous
  Country: AU (occurrence: AU)
  Receive Date: 20130430
  Receipt Date: 20130430
  Transmission Date: 20140414
  Serious: Yes (Life-Threatening, Hospitalization, Other)
  Sender: FDA-Public Use
  Company Number: AU-ELI_LILLY_AND_COMPANY-AU201304006505

PATIENT
  Age: 0 Day
  Sex: 0

DRUGS (4)
  1. FLUOXETINE [Suspect]
     Dosage: 1 DF, UNKNOWN
     Route: 064
  2. QUETIAPINE [Concomitant]
     Dosage: 200 MG, QD
     Route: 064
  3. CELESTONE [Concomitant]
     Dosage: 1 DF, UNK
     Route: 064
  4. NIFEDIPINE [Concomitant]
     Dosage: 1 DF, UNK
     Route: 064

REACTIONS (10)
  - Foetal distress syndrome [Recovered/Resolved]
  - Tachycardia foetal [Recovered/Resolved]
  - Somnolence neonatal [Recovered/Resolved]
  - Tremor neonatal [Recovered/Resolved]
  - Feeding disorder neonatal [Recovered/Resolved]
  - Drug withdrawal syndrome neonatal [Recovered/Resolved]
  - Premature baby [Unknown]
  - Foetal exposure timing unspecified [Unknown]
  - Maternal drugs affecting foetus [None]
  - Caesarean section [None]
